FAERS Safety Report 22531291 (Version 1)
Quarter: 2023Q2

REPORT INFORMATION
  Report Type: Spontaneous
  Country: AT (occurrence: AT)
  Receive Date: 20230607
  Receipt Date: 20230607
  Transmission Date: 20230722
  Serious: Yes (Hospitalization)
  Sender: FDA-Public Use
  Company Number: AT-MYLANLABS-2023M1059207

PATIENT
  Age: 63 Year
  Sex: Female

DRUGS (14)
  1. DULOXETINE [Suspect]
     Active Substance: DULOXETINE
     Indication: Anxiety
     Dosage: 120 MILLIGRAM, QD
     Route: 065
  2. DULOXETINE [Suspect]
     Active Substance: DULOXETINE
     Indication: Depression
  3. PRAMIPEXOLE [Suspect]
     Active Substance: PRAMIPEXOLE
     Indication: Restless legs syndrome
     Dosage: 0.18 MILLIGRAM, QD
     Route: 065
  4. TRAZODONE [Suspect]
     Active Substance: TRAZODONE HYDROCHLORIDE
     Indication: Anxiety
     Dosage: 100 MILLIGRAM, QD
     Route: 065
  5. TRAZODONE [Suspect]
     Active Substance: TRAZODONE HYDROCHLORIDE
     Indication: Depression
  6. PROMETHAZINE [Suspect]
     Active Substance: PROMETHAZINE HYDROCHLORIDE
     Indication: Restless legs syndrome
     Dosage: 25 MILLIGRAM, QD
     Route: 065
  7. BENSERAZIDE\LEVODOPA [Suspect]
     Active Substance: BENSERAZIDE\LEVODOPA
     Indication: Restless legs syndrome
     Dosage: UNK, LEVODOPA/BENSERAZIDE 100MG/25MG
     Route: 065
  8. METAMIZOLE [Concomitant]
     Active Substance: METAMIZOLE
     Indication: Pain
     Dosage: 500 MILLIGRAM, BID
     Route: 065
  9. NABIXIMOLS [Concomitant]
     Active Substance: NABIXIMOLS
     Indication: Pain
     Dosage: 0.25 MILLILITER, BID (TETRAHYDROCANNABINOL/CANNABIDIOL 10:10MG)
     Route: 048
  10. NABIXIMOLS [Concomitant]
     Active Substance: NABIXIMOLS
     Dosage: 0.5 MILLILITER, BID (TETRAHYDROCANNABINOL/CANNABIDIOL 10:10MG)
     Route: 048
  11. BUDESONIDE [Concomitant]
     Active Substance: BUDESONIDE
     Indication: Asthma
     Dosage: 200 MICROGRAM
     Route: 065
  12. ATORVASTATIN [Concomitant]
     Active Substance: ATORVASTATIN
     Indication: Blood cholesterol increased
     Dosage: 10 MILLIGRAM, QD
     Route: 065
  13. MAGNESIUM ASPARTATE HYDROCHLORIDE [Concomitant]
     Active Substance: MAGNESIUM ASPARTATE HYDROCHLORIDE
     Indication: Muscle relaxant therapy
     Dosage: 10 MILLIMOLE, QD, AT NIGHT
     Route: 065
  14. PROCAINE [Concomitant]
     Active Substance: PROCAINE
     Indication: Local anaesthesia
     Dosage: UNK, 2 X 2.5 ML
     Route: 065

REACTIONS (1)
  - Drug ineffective [Unknown]
